FAERS Safety Report 26074917 (Version 1)
Quarter: 2025Q4

REPORT INFORMATION
  Report Type: Spontaneous
  Country: CN (occurrence: CN)
  Receive Date: 20251121
  Receipt Date: 20251121
  Transmission Date: 20260118
  Serious: Yes (Hospitalization, Other)
  Sender: MERCK SHARP & DOHME LLC
  Company Number: CN-009507513-2350793

PATIENT
  Age: 75 Year
  Sex: Male

DRUGS (1)
  1. KEYTRUDA [Suspect]
     Active Substance: PEMBROLIZUMAB
     Indication: Lung neoplasm malignant
     Dosage: 200 MG Q3W
     Route: 041
     Dates: start: 20250924, end: 20250924

REACTIONS (2)
  - Guillain-Barre syndrome [Recovering/Resolving]
  - Lung neoplasm malignant [Unknown]

NARRATIVE: CASE EVENT DATE: 20250101
